FAERS Safety Report 9286036 (Version 1)
Quarter: 2013Q2

REPORT INFORMATION
  Report Type: Spontaneous
  Country: BR (occurrence: BR)
  Receive Date: 20130513
  Receipt Date: 20130513
  Transmission Date: 20140414
  Serious: Yes (Death, Other)
  Sender: FDA-Public Use
  Company Number: BR-ASTRAZENECA-2013SE32835

PATIENT
  Sex: Male

DRUGS (2)
  1. CASODEX [Suspect]
     Indication: PROSTATE CANCER
     Route: 048
     Dates: end: 201201
  2. SELOZOK [Suspect]
     Indication: HYPERTENSION
     Route: 048

REACTIONS (2)
  - Bladder cancer [Fatal]
  - Nephrolithiasis [Unknown]
